FAERS Safety Report 7830539-8 (Version None)
Quarter: 2011Q4

REPORT INFORMATION
  Report Type: 
  Country: None (occurrence: None)
  Receive Date: 20111021
  Receipt Date: 20111014
  Transmission Date: 20120403
  Serious: Yes (Other)
  Sender: FDA-Public Use
  Company Number: PR-JNJFOC-20111006874

PATIENT
  Age: 80 Year
  Sex: Female

DRUGS (4)
  1. ZOSYN [Concomitant]
     Indication: SEPSIS
     Route: 065
  2. VANCOMYCIN HCL [Concomitant]
     Indication: SEPSIS
     Route: 065
  3. DORIBAX [Suspect]
     Indication: SEPSIS
     Route: 065
     Dates: start: 20111013
  4. CIPROFLOXACIN [Concomitant]
     Indication: SEPSIS
     Route: 065

REACTIONS (1)
  - CONVULSION [None]
